FAERS Safety Report 6218058-6 (Version None)
Quarter: 2009Q2

REPORT INFORMATION
  Report Type: 
  Country: None (occurrence: None)
  Receive Date: 20090608
  Receipt Date: 20090528
  Transmission Date: 20091009
  Serious: Yes (Other)
  Sender: FDA-Public Use
  Company Number: ES-ASTRAZENECA-2009SE02110

PATIENT
  Age: 41 Year
  Sex: Female

DRUGS (1)
  1. NEXIUM MUMPS [Suspect]
     Indication: HIATUS HERNIA
     Route: 048
     Dates: start: 20081201, end: 20090201

REACTIONS (2)
  - AGGRESSION [None]
  - THROMBOPHLEBITIS [None]
